FAERS Safety Report 17610123 (Version 1)
Quarter: 2020Q1

REPORT INFORMATION
  Report Type: Spontaneous
  Country: US (occurrence: US)
  Receive Date: 20200330
  Receipt Date: 20200330
  Transmission Date: 20200409
  Serious: No
  Sender: FDA-Public Use
  Company Number: None

PATIENT
  Age: 46 Year
  Sex: Male

DRUGS (1)
  1. COSENTYX [Suspect]
     Active Substance: SECUKINUMAB
     Dosage: OTHER
     Route: 058
     Dates: start: 201906, end: 201909

REACTIONS (6)
  - Abdominal pain upper [None]
  - Abdominal distension [None]
  - Constipation [None]
  - Urine output increased [None]
  - Urinary hesitation [None]
  - Nausea [None]

NARRATIVE: CASE EVENT DATE: 20190927
